FAERS Safety Report 25159650 (Version 1)
Quarter: 2025Q2

REPORT INFORMATION
  Report Type: Spontaneous
  Country: US (occurrence: US)
  Receive Date: 20250404
  Receipt Date: 20250404
  Transmission Date: 20250716
  Serious: No
  Sender: ABBVIE
  Company Number: US-ABBVIE-6205181

PATIENT
  Sex: Male

DRUGS (1)
  1. UPADACITINIB [Suspect]
     Active Substance: UPADACITINIB
     Indication: Inflammatory bowel disease
     Route: 048
     Dates: start: 202411

REACTIONS (4)
  - Hepatitis C antibody positive [Unknown]
  - Hepatic enzyme increased [Unknown]
  - Hepatitis B antibody positive [Unknown]
  - Viral load [Unknown]

NARRATIVE: CASE EVENT DATE: 20250307
